FAERS Safety Report 10532974 (Version 1)
Quarter: 2014Q4

REPORT INFORMATION
  Report Type: Spontaneous
  Country: US (occurrence: US)
  Receive Date: 20141022
  Receipt Date: 20141022
  Transmission Date: 20150529
  Serious: No
  Sender: FDA-Public Use
  Company Number: US-TEVA-435993USA

PATIENT
  Sex: Female

DRUGS (2)
  1. PENICILLIN [Concomitant]
     Active Substance: PENICILLIN
  2. AMOXICILLIN W/CLAVULANIC ACID [Suspect]
     Active Substance: AMOXICILLIN\CLAVULANIC ACID
     Dosage: 875 MG/125 MG

REACTIONS (1)
  - Sensation of foreign body [Unknown]
